FAERS Safety Report 14740093 (Version 1)
Quarter: 2018Q2

REPORT INFORMATION
  Report Type: Spontaneous
  Country: JP (occurrence: JP)
  Receive Date: 20180410
  Receipt Date: 20180410
  Transmission Date: 20180711
  Serious: Yes (Other)
  Sender: FDA-Public Use
  Company Number: JP-BAUSCH-BL-2018-008959

PATIENT
  Age: 33 Year
  Sex: Male

DRUGS (5)
  1. ALCOHOL. [Concomitant]
     Active Substance: ALCOHOL
     Indication: PRODUCT USED FOR UNKNOWN INDICATION
     Dosage: CENTRAL EPITHELIUM OF LEFT CORNEA WAS DEBRIDED WITH 20 PERCENT ETHANOL
     Route: 047
  2. LEVOFLOXACIN. [Concomitant]
     Active Substance: LEVOFLOXACIN
     Indication: PRODUCT USED FOR UNKNOWN INDICATION
     Dosage: 5 TIMES DAILY
     Route: 047
  3. DICLOFENAC SODIUM. [Suspect]
     Active Substance: DICLOFENAC SODIUM
     Indication: PRODUCT USED FOR UNKNOWN INDICATION
     Dosage: 5 TIMES PER DAY FOR 5 DAYS
     Route: 047
  4. RIBOFLAVIN [Concomitant]
     Active Substance: RIBOFLAVIN
     Indication: PRODUCT USED FOR UNKNOWN INDICATION
     Route: 047
  5. BETAMETHASONE. [Concomitant]
     Active Substance: BETAMETHASONE
     Indication: PRODUCT USED FOR UNKNOWN INDICATION
     Dosage: 5 TIMES DAILY
     Route: 047

REACTIONS (7)
  - Persistent corneal epithelial defect [Recovering/Resolving]
  - Ciliary hyperaemia [Recovering/Resolving]
  - Corneal opacity [Recovering/Resolving]
  - Ulcerative keratitis [Recovering/Resolving]
  - Inappropriate schedule of drug administration [Unknown]
  - Corneal oedema [Recovering/Resolving]
  - Incorrect drug administration duration [Unknown]
